FAERS Safety Report 25479058 (Version 1)
Quarter: 2025Q2

REPORT INFORMATION
  Report Type: Spontaneous
  Country: IT (occurrence: IT)
  Receive Date: 20250625
  Receipt Date: 20250625
  Transmission Date: 20250717
  Serious: Yes (Other)
  Sender: B. BRAUN MEDICAL INC.
  Company Number: IT-BBM-IT-BBM-202502293

PATIENT
  Age: 76 Year

DRUGS (4)
  1. ACETAMINOPHEN [Interacting]
     Active Substance: ACETAMINOPHEN
     Indication: Antiinflammatory therapy
  2. IMATINIB [Interacting]
     Active Substance: IMATINIB
     Indication: Chemotherapy
  3. UNSPECIFIED INGREDIENT [Concomitant]
     Active Substance: UNSPECIFIED INGREDIENT
     Indication: Antiinflammatory therapy
  4. VKA therapy [Concomitant]
     Indication: Anticoagulant therapy

REACTIONS (4)
  - Haematochezia [Unknown]
  - Drug interaction [Unknown]
  - Abdominal pain [Unknown]
  - Transaminases increased [Unknown]
